FAERS Safety Report 22072175 (Version 1)
Quarter: 2023Q1

REPORT INFORMATION
  Report Type: Spontaneous
  Country: US (occurrence: US)
  Receive Date: 20230308
  Receipt Date: 20230308
  Transmission Date: 20230418
  Serious: No
  Sender: FDA-Public Use
  Company Number: US-LUPIN PHARMACEUTICALS INC.-2023-01681

PATIENT

DRUGS (3)
  1. MAGNESIUM SULFATE\POTASSIUM SULFATE\SODIUM SULFATE [Suspect]
     Active Substance: MAGNESIUM SULFATE\POTASSIUM SULFATE\SODIUM SULFATE
     Indication: Bowel preparation
     Dosage: UNK (1 TIME)
     Route: 048
     Dates: start: 20230219, end: 20230219
  2. EZETIMIBE [Concomitant]
     Active Substance: EZETIMIBE
     Indication: Blood cholesterol increased
     Dosage: 1 DOSAGE FORM, QD
     Route: 048
  3. METOPROLOL TARTRATE [Concomitant]
     Active Substance: METOPROLOL TARTRATE
     Indication: Hypertension
     Dosage: 0.5 DOSAGE FORM, PRN, HALF TABLET AS NEEDED
     Route: 065

REACTIONS (4)
  - Blood pressure increased [Unknown]
  - Malaise [Unknown]
  - Nausea [Unknown]
  - Dizziness [Not Recovered/Not Resolved]
